FAERS Safety Report 11520724 (Version 4)
Quarter: 2016Q1

REPORT INFORMATION
  Report Type: Spontaneous
  Country: US (occurrence: US)
  Receive Date: 20150918
  Receipt Date: 20160112
  Transmission Date: 20160525
  Serious: No
  Sender: FDA-Public Use
  Company Number: US-PFIZER INC-2015310453

PATIENT
  Age: 56 Year
  Sex: Male
  Weight: 118 kg

DRUGS (5)
  1. NICOTROL [Suspect]
     Active Substance: NICOTINE
     Dosage: UNK
     Dates: start: 2015, end: 2015
  2. NICOTROL [Suspect]
     Active Substance: NICOTINE
     Indication: SMOKING CESSATION THERAPY
     Dosage: THREE OR FOUR INHALATIONS, AS NEEDED
     Dates: start: 2007, end: 2008
  3. NICOTROL [Suspect]
     Active Substance: NICOTINE
     Dosage: 10MG PER CARTRIDGE 4MG DELIVERED AND INHALE 6 CARTRIDGES EVERY DAY FOR 3-6 WEEKS
     Dates: start: 20150927
  4. NICOTROL [Suspect]
     Active Substance: NICOTINE
     Dosage: 10 MG, UNK (10 MG 2X)
     Dates: start: 20151103, end: 20151118
  5. MORPHINE [Concomitant]
     Active Substance: MORPHINE
     Indication: BACK PAIN
     Dosage: UNK

REACTIONS (2)
  - Cough [Unknown]
  - Depression [Unknown]

NARRATIVE: CASE EVENT DATE: 20151103
